FAERS Safety Report 13737238 (Version 1)
Quarter: 2017Q3

REPORT INFORMATION
  Report Type: Spontaneous
  Country: US (occurrence: US)
  Receive Date: 20170710
  Receipt Date: 20170710
  Transmission Date: 20171127
  Serious: No
  Sender: FDA-Public Use
  Company Number: US-SAOL THERAPEUTICS-2016SAO00214

PATIENT

DRUGS (14)
  1. GABAPENTIN. [Concomitant]
     Active Substance: GABAPENTIN
  2. OXYCODONE [Concomitant]
     Active Substance: OXYCODONE
  3. CLONOZAPAM [Concomitant]
     Active Substance: CLONAZEPAM
  4. DESMOPRESSIN [Concomitant]
     Active Substance: DESMOPRESSIN
  5. NAPROXEN SODIUM. [Concomitant]
     Active Substance: NAPROXEN SODIUM
  6. IBUPROFEN. [Concomitant]
     Active Substance: IBUPROFEN
  7. BACLOFEN. [Suspect]
     Active Substance: BACLOFEN
     Indication: MUSCLE SPASTICITY
     Route: 037
  8. TUMERIC [Concomitant]
     Active Substance: HERBALS\TURMERIC
  9. PROBIOTICS [Concomitant]
     Active Substance: PROBIOTICS NOS
  10. AMBIEN [Concomitant]
     Active Substance: ZOLPIDEM TARTRATE
  11. VITAMIN D [Concomitant]
     Active Substance: CHOLECALCIFEROL
     Dosage: 50000 U, 1X/WEEK
  12. VITAMIN B12 [Concomitant]
     Active Substance: CYANOCOBALAMIN
  13. ADDERALL XR [Concomitant]
     Active Substance: AMPHETAMINE ASPARTATE\AMPHETAMINE SULFATE\DEXTROAMPHETAMINE SACCHARATE\DEXTROAMPHETAMINE SULFATE
  14. ACETAMINOPHEN. [Concomitant]
     Active Substance: ACETAMINOPHEN

REACTIONS (2)
  - Muscle spasticity [Unknown]
  - Device leakage [Unknown]

NARRATIVE: CASE EVENT DATE: 20160503
